FAERS Safety Report 7158889-1 (Version None)
Quarter: 2010Q4

REPORT INFORMATION
  Report Type: 
  Country: None (occurrence: None)
  Receive Date: 20101214
  Receipt Date: 20101207
  Transmission Date: 20110411
  Serious: Yes (Hospitalization)
  Sender: FDA-Public Use
  Company Number: DE-CEPHALON-2010006410

PATIENT
  Sex: Male
  Weight: 85 kg

DRUGS (2)
  1. TREANDA [Suspect]
     Route: 042
     Dates: start: 20100104, end: 20100105
  2. RITUXIMAB [Concomitant]
     Route: 042
     Dates: start: 20100104

REACTIONS (1)
  - PYELONEPHRITIS [None]
